FAERS Safety Report 17475507 (Version 14)
Quarter: 2021Q3

REPORT INFORMATION
  Report Type: Spontaneous
  Country: US (occurrence: US)
  Receive Date: 20200228
  Receipt Date: 20210810
  Transmission Date: 20211014
  Serious: No
  Sender: FDA-Public Use
  Company Number: US-PFIZER INC-2020002964

PATIENT
  Age: 77 Year
  Sex: Female
  Weight: 72 kg

DRUGS (4)
  1. FUROSEMIDE. [Concomitant]
     Active Substance: FUROSEMIDE
     Dosage: 20 MG, UNK
  2. ESTRING [Suspect]
     Active Substance: ESTRADIOL
     Indication: VAGINAL HAEMORRHAGE
     Dosage: 7.5 MG, UNK
  3. ESTRING [Suspect]
     Active Substance: ESTRADIOL
     Indication: UTERINE PROLAPSE
     Dosage: 2 MG, EVERY 3 MONTHS (1 EVERY 3 MONTHS)
     Dates: start: 202004
  4. SIMVASTATIN. [Concomitant]
     Active Substance: SIMVASTATIN
     Indication: BLOOD CHOLESTEROL
     Dosage: 40 MG, 1X/DAY

REACTIONS (11)
  - Product dose omission issue [Unknown]
  - Intermenstrual bleeding [Recovering/Resolving]
  - Postmenopause [Unknown]
  - Product size issue [Unknown]
  - Vulvovaginal discomfort [Unknown]
  - Product administration error [Unknown]
  - Product prescribing error [Unknown]
  - Off label use [Unknown]
  - Uterine irritability [Unknown]
  - Pain [Unknown]
  - Vulvovaginal dryness [Unknown]

NARRATIVE: CASE EVENT DATE: 20200707
